FAERS Safety Report 6119565-7 (Version None)
Quarter: 2009Q1

REPORT INFORMATION
  Report Type: 
  Country: None (occurrence: None)
  Receive Date: 20090316
  Receipt Date: 20090306
  Transmission Date: 20090719
  Serious: Yes (Other)
  Sender: FDA-Public Use
  Company Number: B0564360A

PATIENT
  Age: 52 Year
  Sex: Female

DRUGS (1)
  1. FLIXOTIDE DISKUS [Suspect]
     Indication: ASTHMA
     Route: 055
     Dates: start: 20090101, end: 20090101

REACTIONS (4)
  - ASTHMA [None]
  - DRUG INEFFECTIVE [None]
  - DYSGEUSIA [None]
  - PRODUCT QUALITY ISSUE [None]
